FAERS Safety Report 8910976 (Version 1)
Quarter: 2012Q4

REPORT INFORMATION
  Report Type: 
  Country: GB (occurrence: GB)
  Receive Date: 20121115
  Receipt Date: 20121115
  Transmission Date: 20130627
  Serious: Yes (Other)
  Sender: FDA-Public Use
  Company Number: GB-WATSON-2012-19119

PATIENT
  Age: 62 Year
  Sex: Male
  Weight: 110 kg

DRUGS (2)
  1. AMOXICILLIN [Suspect]
     Indication: VIRAL INFECTION
     Dosage: 500 mg, tid
     Route: 048
     Dates: start: 20121013, end: 20121021
  2. PREDNISOLONE (UNKNOWN) [Suspect]
     Indication: VIRAL INFECTION
     Dosage: 1 DF, SIX TIMES A DAY
     Route: 048
     Dates: start: 20121013, end: 20121021

REACTIONS (1)
  - Abdominal pain upper [Recovering/Resolving]
